FAERS Safety Report 22351679 (Version 1)
Quarter: 2023Q2

REPORT INFORMATION
  Report Type: Spontaneous
  Country: US (occurrence: None)
  Receive Date: 20230522
  Receipt Date: 20230522
  Transmission Date: 20230722
  Serious: No
  Sender: FDA-Public Use
  Company Number: None

PATIENT
  Age: 78 Year
  Sex: Female
  Weight: 106.14 kg

DRUGS (3)
  1. ENBREL [Suspect]
     Active Substance: ETANERCEPT
     Indication: Rheumatoid arthritis
     Dosage: FREQUENCY : WEEKLY;?
     Route: 058
     Dates: start: 202101
  2. AMLODIPINE [Suspect]
     Active Substance: AMLODIPINE BESYLATE
  3. MYRBETRIQ [Suspect]
     Active Substance: MIRABEGRON

REACTIONS (2)
  - Pulmonary oedema [None]
  - Oxygen saturation decreased [None]
